FAERS Safety Report 17788349 (Version 4)
Quarter: 2020Q3

REPORT INFORMATION
  Report Type: Spontaneous
  Country: US (occurrence: US)
  Receive Date: 20200514
  Receipt Date: 20200923
  Transmission Date: 20201102
  Serious: Yes (Death, Other)
  Sender: FDA-Public Use
  Company Number: US-LEXICON PHARMACEUTICALS, INC-20-1606-00366

PATIENT
  Age: 71 Year
  Sex: Male

DRUGS (2)
  1. PREPARATION H NOS [Concomitant]
     Active Substance: COCOA BUTTER\PETROLATUM\PHENYLEPHRINE HYDROCHLORIDE\PHENYLEPHRINE HYDROCHLORIDE OR MINERAL OIL
  2. XERMELO [Suspect]
     Active Substance: TELOTRISTAT ETHYL
     Indication: CARCINOID SYNDROME
     Dates: start: 20200502, end: 20200530

REACTIONS (9)
  - Blood iron decreased [Unknown]
  - Colon cancer [Unknown]
  - Faeces discoloured [Not Recovered/Not Resolved]
  - Gastrointestinal inflammation [Unknown]
  - Peripheral swelling [Unknown]
  - Fatigue [Not Recovered/Not Resolved]
  - Gastritis [Unknown]
  - Death [Fatal]
  - Haematochezia [Not Recovered/Not Resolved]
